FAERS Safety Report 12930101 (Version 1)
Quarter: 2016Q4

REPORT INFORMATION
  Report Type: Report from Study
  Country: US (occurrence: US)
  Receive Date: 20161110
  Receipt Date: 20161110
  Transmission Date: 20170207
  Serious: Yes (Hospitalization)
  Sender: FDA-Public Use
  Company Number: US-BIOGEN-2016BI00313851

PATIENT
  Sex: Female

DRUGS (1)
  1. TECFIDERA [Suspect]
     Active Substance: DIMETHYL FUMARATE
     Indication: MULTIPLE SCLEROSIS
     Route: 065
     Dates: start: 20160223, end: 20160831

REACTIONS (6)
  - Mental impairment [Unknown]
  - Blood pressure increased [Recovered/Resolved]
  - Spinal operation [Recovered/Resolved]
  - Gait disturbance [Not Recovered/Not Resolved]
  - Abnormal behaviour [Unknown]
  - Fall [Recovered/Resolved]
